FAERS Safety Report 11146035 (Version 1)
Quarter: 2015Q2

REPORT INFORMATION
  Report Type: Spontaneous
  Country: JP (occurrence: JP)
  Receive Date: 20150528
  Receipt Date: 20150528
  Transmission Date: 20150821
  Serious: Yes (Death)
  Sender: FDA-Public Use
  Company Number: JP-TEVA-552896ISR

PATIENT
  Age: 76 Year
  Sex: Female
  Weight: 42 kg

DRUGS (4)
  1. PENTAZOCINE [Concomitant]
     Active Substance: PENTAZOCINE
     Indication: BREAKTHROUGH PAIN
     Route: 065
     Dates: start: 20141215, end: 20141215
  2. FENTOS [Concomitant]
     Active Substance: FENTANYL
     Indication: CANCER PAIN
     Route: 062
     Dates: start: 20141212, end: 20141215
  3. E-FEN BUCCAL(FENTANYL CITRATE) [Suspect]
     Active Substance: FENTANYL CITRATE
     Indication: BREAKTHROUGH PAIN
     Dosage: DAILY DOSE: 50 MCG - 150 MCG
     Route: 002
     Dates: start: 20141213, end: 20141214
  4. E-FEN BUCCAL(FENTANYL CITRATE) [Suspect]
     Active Substance: FENTANYL CITRATE
     Dosage: 100 MICROGRAM DAILY;
     Route: 002
     Dates: start: 20141214, end: 20141215

REACTIONS (2)
  - Pancreatic carcinoma [Fatal]
  - Dry mouth [Not Recovered/Not Resolved]

NARRATIVE: CASE EVENT DATE: 20141215
